FAERS Safety Report 15114526 (Version 3)
Quarter: 2018Q3

REPORT INFORMATION
  Report Type: Spontaneous
  Country: IS (occurrence: IS)
  Receive Date: 20180706
  Receipt Date: 20180717
  Transmission Date: 20181010
  Serious: Yes (Death, Other)
  Sender: FDA-Public Use
  Company Number: IS-PFIZER INC-2018257566

PATIENT

DRUGS (9)
  1. IMOVANE [Suspect]
     Active Substance: ZOPICLONE
     Dosage: 180 DF, OVER 3 MONTH PERIOD
  2. QUETIAPINE. [Suspect]
     Active Substance: QUETIAPINE
     Dosage: 300 DF, OVER 3 MONTH PERIOD
  3. RIVOTRIL [Suspect]
     Active Substance: CLONAZEPAM
     Dosage: 150 DF, OVER 3 MONTH PERIOD
  4. TRAMADOL. [Suspect]
     Active Substance: TRAMADOL
     Dosage: 140 DF, OVER 3 MONTH PERIOD
  5. PARKODIN FORTE [Suspect]
     Active Substance: ACETAMINOPHEN\CODEINE PHOSPHATE
     Dosage: 40 DF, OVER 3 MONTH PERIOD
  6. TAFIL RETARD [Suspect]
     Active Substance: ALPRAZOLAM
     Dosage: 30 DF, OVER 3 MONTH PERIOD
  7. HALCION [Suspect]
     Active Substance: TRIAZOLAM
     Dosage: 30 DF, OVER 3 MONTH PERIOD
  8. XANAX [Suspect]
     Active Substance: ALPRAZOLAM
     Dosage: 30 DF, OVER 3 MONTH PERIOD
  9. TAFIL [Suspect]
     Active Substance: ALPRAZOLAM
     Dosage: 120 DF, OVER 3 MONTH PERIOD

REACTIONS (2)
  - Toxicity to various agents [Fatal]
  - Drug abuse [Unknown]
